FAERS Safety Report 5708942-1 (Version None)
Quarter: 2008Q2

REPORT INFORMATION
  Report Type: 
  Country: None (occurrence: None)
  Receive Date: 20080414
  Receipt Date: 20080414
  Transmission Date: 20081010
  Serious: Yes (Disabling)
  Sender: FDA-Public Use
  Company Number: None

PATIENT
  Sex: Male
  Weight: 79.3795 kg

DRUGS (1)
  1. LIPITOR [Suspect]
     Indication: BLOOD CHOLESTEROL INCREASED
     Dosage: 1 1 PER DAY PO
     Route: 048
     Dates: start: 19970610, end: 20060115

REACTIONS (4)
  - ABNORMAL FAECES [None]
  - MUSCLE FATIGUE [None]
  - MUSCLE SPASMS [None]
  - MYALGIA [None]
